FAERS Safety Report 4324529-X (Version None)
Quarter: 2004Q1

REPORT INFORMATION
  Report Type: 
  Country: None (occurrence: None)
  Receive Date: 20040326
  Receipt Date: 20040225
  Transmission Date: 20041129
  Serious: No
  Sender: FDA-Public Use
  Company Number: US-GLAXOSMITHKLINE-A0500351A

PATIENT
  Age: 9 Year
  Sex: Male
  Weight: 39.5 kg

DRUGS (5)
  1. ADVAIR DISKUS 100/50 [Suspect]
     Indication: ASTHMA
     Dosage: 1PUFF TWICE PER DAY
     Route: 055
     Dates: start: 20040119, end: 20040220
  2. SINGULAIR [Concomitant]
     Indication: ASTHMA
     Dosage: 5MG PER DAY
     Route: 048
  3. PULMICORT [Concomitant]
     Indication: ASTHMA
     Dosage: 400MCG PER DAY
     Route: 055
  4. ALBUTEROL [Concomitant]
     Indication: ASTHMA
     Dosage: 2PUFF AS REQUIRED
     Route: 055
  5. NASACORT [Concomitant]
     Indication: RHINITIS
     Dosage: 1SPR PER DAY
     Route: 045

REACTIONS (4)
  - LOCAL SWELLING [None]
  - RASH [None]
  - RASH PRURITIC [None]
  - URTICARIA [None]
